FAERS Safety Report 13159188 (Version 2)
Quarter: 2017Q1

REPORT INFORMATION
  Report Type: Report from Study
  Country: IT (occurrence: IT)
  Receive Date: 20170127
  Receipt Date: 20170216
  Transmission Date: 20170428
  Serious: Yes (Hospitalization)
  Sender: FDA-Public Use
  Company Number: IT-TEVA-733087ACC

PATIENT
  Age: 61 Year
  Sex: Female
  Weight: 80 kg

DRUGS (7)
  1. RAMIPRIL. [Concomitant]
     Active Substance: RAMIPRIL
     Indication: HYPERTENSION
     Route: 048
  2. LONQUEX [Suspect]
     Active Substance: LIPEGFILGRASTIM
     Indication: PROPHYLAXIS
     Dosage: 6 MILLIGRAM DAILY;
     Route: 058
     Dates: start: 20161013, end: 20161013
  3. PAROXETINE. [Concomitant]
     Active Substance: PAROXETINE
  4. EPIRUBICINA TEVA [Suspect]
     Active Substance: EPIRUBICIN
     Indication: PREOPERATIVE CARE
     Dosage: 90 MG/M2 DAILY;
     Route: 041
     Dates: start: 20161011, end: 20161011
  5. SIMVASTATIN. [Concomitant]
     Active Substance: SIMVASTATIN
  6. ENDOXAN BAXTER [Suspect]
     Active Substance: CYCLOPHOSPHAMIDE
     Indication: PREOPERATIVE CARE
     Dosage: 600 MG/M2 DAILY;
     Route: 041
     Dates: start: 20161011, end: 20161011
  7. CARDIOASPIRIN [Concomitant]
     Active Substance: ASPIRIN

REACTIONS (1)
  - Chest pain [Recovered/Resolved]

NARRATIVE: CASE EVENT DATE: 20161019
